FAERS Safety Report 6596591-5 (Version None)
Quarter: 2010Q1

REPORT INFORMATION
  Report Type: 
  Country: None (occurrence: None)
  Receive Date: 20100222
  Receipt Date: 20100222
  Transmission Date: 20100710
  Serious: No
  Sender: FDA-Public Use
  Company Number: None

PATIENT
  Sex: Female
  Weight: 87.3 kg

DRUGS (1)
  1. AVASTIN [Suspect]
     Indication: COLON CANCER

REACTIONS (4)
  - ABSCESS [None]
  - DEEP VEIN THROMBOSIS [None]
  - LARGE INTESTINE PERFORATION [None]
  - RECTAL HAEMORRHAGE [None]
